FAERS Safety Report 7423743-4 (Version None)
Quarter: 2011Q2

REPORT INFORMATION
  Report Type: 
  Country: None (occurrence: None)
  Receive Date: 20110413
  Receipt Date: 20110413
  Transmission Date: 20111010
  Serious: Yes (Death)
  Sender: FDA-Public Use
  Company Number: None

PATIENT
  Age: 35 Year
  Sex: Male

DRUGS (5)
  1. WELLBUTRIN [Suspect]
  2. KLONOPIN [Suspect]
  3. CITALOPRAM HYDROBROMIDE [Suspect]
  4. CITALOPRAM HYDROBROMIDE [Suspect]
     Indication: DEPRESSION
     Dosage: 1 PO QDAY  (SEVERAL YEARS ON A DIFFERENT GENERIC)
  5. CITALOPRAM HYDROBROMIDE [Suspect]
     Indication: ANXIETY
     Dosage: 1 PO QDAY  (SEVERAL YEARS ON A DIFFERENT GENERIC)

REACTIONS (2)
  - PRODUCT SUBSTITUTION ISSUE [None]
  - COMPLETED SUICIDE [None]
